FAERS Safety Report 8215068-4 (Version None)
Quarter: 2012Q1

REPORT INFORMATION
  Report Type: 
  Country: None (occurrence: None)
  Receive Date: 20120316
  Receipt Date: 20120312
  Transmission Date: 20120608
  Serious: Yes (Hospitalization)
  Sender: FDA-Public Use
  Company Number: PR-ABBOTT-11P-131-0887114-00

PATIENT
  Sex: Male
  Weight: 88.984 kg

DRUGS (3)
  1. UNKNOWN MEDICATION [Concomitant]
     Indication: HYPERTENSION
     Route: 048
  2. HUMIRA [Suspect]
     Indication: ANKYLOSING SPONDYLITIS
     Route: 058
     Dates: start: 20100101, end: 20111101
  3. GLUCOSOL(LANGERSTOEMIA SPECIOSE LEAVES CAPSULES) [Concomitant]
     Indication: PRODUCT USED FOR UNKNOWN INDICATION
     Route: 048

REACTIONS (2)
  - COLONIC POLYP [None]
  - PAIN [None]
